FAERS Safety Report 26108448 (Version 1)
Quarter: 2025Q4

REPORT INFORMATION
  Report Type: Spontaneous
  Country: CA (occurrence: CA)
  Receive Date: 20251201
  Receipt Date: 20251201
  Transmission Date: 20260118
  Serious: No
  Sender: ASTELLAS
  Company Number: CA-ASTELLAS-2025-AER-062655

PATIENT
  Age: 46 Year

DRUGS (1)
  1. VEOZAH [Suspect]
     Active Substance: FEZOLINETANT
     Indication: Product used for unknown indication
     Route: 048
     Dates: start: 20250724

REACTIONS (4)
  - Hepatic function abnormal [Unknown]
  - Arthritis [Unknown]
  - Arthralgia [Unknown]
  - Inflammatory marker increased [Unknown]
